FAERS Safety Report 10874545 (Version 3)
Quarter: 2015Q3

REPORT INFORMATION
  Report Type: Spontaneous
  Country: US (occurrence: US)
  Receive Date: 20150227
  Receipt Date: 20150811
  Transmission Date: 20151125
  Serious: Yes (Hospitalization)
  Sender: FDA-Public Use
  Company Number: US-BAYER-2015-027283

PATIENT
  Age: 27 Year
  Sex: Female

DRUGS (11)
  1. MIRENA [Suspect]
     Active Substance: LEVONORGESTREL
     Indication: CONTRACEPTION
     Dosage: 20 MCG/24HR, CONT
     Route: 015
     Dates: start: 20130225, end: 20130611
  2. BENADRYL [DIPHENHYDRAMINE,PARACETAMOL,PHENYLPROPANOLAMINE HYDROCHL [Concomitant]
  3. ALBUTEROL. [Concomitant]
     Active Substance: ALBUTEROL
     Dosage: UNK
     Dates: start: 20130503
  4. ALBUTEROL. [Concomitant]
     Active Substance: ALBUTEROL
     Dosage: UNK
     Dates: start: 2007
  5. PULMICORT TURBUHALER [Concomitant]
     Active Substance: BUDESONIDE
  6. PREDNISONE. [Concomitant]
     Active Substance: PREDNISONE
  7. ULTRAM [Concomitant]
     Active Substance: TRAMADOL HYDROCHLORIDE
  8. HYDROXYZINE HCL [Concomitant]
     Active Substance: HYDROXYZINE HYDROCHLORIDE
  9. XANAX [Concomitant]
     Active Substance: ALPRAZOLAM
  10. VENTOLIN [SALBUTAMOL] [Concomitant]
  11. EPINEPHRINE. [Concomitant]
     Active Substance: EPINEPHRINE

REACTIONS (15)
  - Injury [None]
  - Embedded device [None]
  - Activities of daily living impaired [None]
  - Headache [None]
  - Anxiety [None]
  - Pelvic pain [None]
  - Sleep disorder [None]
  - Procedural pain [None]
  - Depression [None]
  - Medical device complication [None]
  - Panic attack [None]
  - Abdominal pain lower [None]
  - Endometriosis [None]
  - Back pain [None]
  - Device issue [None]

NARRATIVE: CASE EVENT DATE: 2013
